FAERS Safety Report 24412452 (Version 3)
Quarter: 2024Q4

REPORT INFORMATION
  Report Type: Spontaneous
  Country: US (occurrence: US)
  Receive Date: 20241008
  Receipt Date: 20241220
  Transmission Date: 20250115
  Serious: No
  Sender: NOVARTIS
  Company Number: US-002147023-NVSC2024US196746

PATIENT

DRUGS (1)
  1. KESIMPTA [Suspect]
     Active Substance: OFATUMUMAB
     Indication: Multiple sclerosis
     Dosage: 20 MG
     Route: 058

REACTIONS (6)
  - Influenza like illness [Unknown]
  - Yawning [Unknown]
  - Arthralgia [Unknown]
  - Arthralgia [Unknown]
  - Somnolence [Unknown]
  - Fatigue [Unknown]
